FAERS Safety Report 5012796-9 (Version None)
Quarter: 2006Q2

REPORT INFORMATION
  Report Type: 
  Country: None (occurrence: None)
  Receive Date: 20060530
  Receipt Date: 20060313
  Transmission Date: 20061013
  Serious: No
  Sender: FDA-Public Use
  Company Number: US-BRISTOL-MYERS SQUIBB COMPANY-13312970

PATIENT

DRUGS (1)
  1. ERBITUX [Suspect]
     Dosage: 100 MG/50 ML
     Route: 042

REACTIONS (1)
  - BLOOD BILIRUBIN INCREASED [None]
